FAERS Safety Report 18580762 (Version 1)
Quarter: 2020Q4

REPORT INFORMATION
  Report Type: Report from Study
  Country: AR (occurrence: AR)
  Receive Date: 20201204
  Receipt Date: 20201204
  Transmission Date: 20210114
  Serious: Yes (Hospitalization, Other)
  Sender: FDA-Public Use
  Company Number: NVSC2020AR318647

PATIENT
  Age: 73 Year
  Sex: Female

DRUGS (1)
  1. DIOVAN [Suspect]
     Active Substance: VALSARTAN
     Indication: HYPERTENSION
     Dosage: 80 MG, QD (START: APPROXIMATELY 20 YEARS AGO)
     Route: 065

REACTIONS (5)
  - Renal disorder [Recovered/Resolved]
  - Blood creatinine abnormal [Recovered/Resolved]
  - Blood cholesterol increased [Unknown]
  - Cataract [Unknown]
  - Myopia [Unknown]
